FAERS Safety Report 7517404-0 (Version None)
Quarter: 2011Q2

REPORT INFORMATION
  Report Type: 
  Country: None (occurrence: None)
  Receive Date: 20110601
  Receipt Date: 20110519
  Transmission Date: 20111010
  Serious: Yes (Hospitalization)
  Sender: FDA-Public Use
  Company Number: IT-CELGENEUS-ITLAB-11-0236

PATIENT
  Sex: Female

DRUGS (6)
  1. SPIRONOLACTONE [Concomitant]
     Route: 065
  2. ALBUMIN (HUMAN) [Concomitant]
     Route: 065
  3. LACTULOSE [Concomitant]
     Route: 065
  4. ANGIOTENSIN CONVERTING ENZYME [Concomitant]
     Route: 065
  5. ABRAXANE [Suspect]
     Indication: BREAST CANCER
     Dosage: 400 (LES20%)
     Route: 051
     Dates: start: 20110225, end: 20110225
  6. DIURETICS [Concomitant]
     Route: 065

REACTIONS (4)
  - NEUTROPENIA [None]
  - MUCOSAL INFLAMMATION [None]
  - LEUKOPENIA [None]
  - BLOOD BILIRUBIN INCREASED [None]
